FAERS Safety Report 7747053-0 (Version None)
Quarter: 2011Q3

REPORT INFORMATION
  Report Type: 
  Country: None (occurrence: None)
  Receive Date: 20110913
  Receipt Date: 20110908
  Transmission Date: 20111222
  Serious: Yes (Hospitalization)
  Sender: FDA-Public Use
  Company Number: PHEH2011US03700

PATIENT
  Sex: Female
  Weight: 55.329 kg

DRUGS (11)
  1. COLACE [Concomitant]
     Dosage: 50 MG, UNK
  2. MULTI-VITAMIN [Concomitant]
  3. VITAMIN B-12 [Concomitant]
  4. SIMVASTATIN [Concomitant]
     Dosage: 40 MG, UNK
  5. WARFARIN SODIUM [Concomitant]
     Dosage: 3 MG, UNK
  6. ASPIRIN [Concomitant]
     Dosage: 81 MG, UNK
  7. EXJADE [Suspect]
     Indication: IRON METABOLISM DISORDER
     Dosage: 1000 MG, BID
     Route: 048
     Dates: start: 20110203
  8. CALCIUM CARBONATE [Concomitant]
     Dosage: 600 MG, UNK
  9. LISINOPRIL [Concomitant]
  10. FOLIC ACID [Concomitant]
     Dosage: 1 MG, UNK
  11. METOPROLOL TARTRATE [Concomitant]
     Dosage: 25 MG, UNK

REACTIONS (1)
  - MYOCARDIAL INFARCTION [None]
